FAERS Safety Report 9137964 (Version 2)
Quarter: 2013Q1

REPORT INFORMATION
  Report Type: Report from Study
  Country: US (occurrence: US)
  Receive Date: 20130304
  Receipt Date: 20130320
  Transmission Date: 20140127
  Serious: Yes (Hospitalization)
  Sender: FDA-Public Use
  Company Number: US-ACTELION-A-US2013-79933

PATIENT
  Age: 68 Year
  Sex: Female

DRUGS (1)
  1. TRACLEER [Suspect]
     Indication: PULMONARY ARTERIAL HYPERTENSION
     Dosage: 86.5 MG, BID
     Route: 048
     Dates: start: 20100415, end: 20130215

REACTIONS (3)
  - Central nervous system lymphoma [Unknown]
  - Brain tumour operation [Unknown]
  - Memory impairment [Unknown]
